FAERS Safety Report 20827008 (Version 1)
Quarter: 2022Q2

REPORT INFORMATION
  Report Type: Spontaneous
  Country: US (occurrence: None)
  Receive Date: 20220513
  Receipt Date: 20220513
  Transmission Date: 20220720
  Serious: Yes (Hospitalization)
  Sender: FDA-Public Use
  Company Number: None

PATIENT
  Sex: Female

DRUGS (2)
  1. XELODA [Suspect]
     Active Substance: CAPECITABINE
     Dates: end: 20220501
  2. ELOXATIN [Suspect]
     Active Substance: OXALIPLATIN
     Dates: end: 20220422

REACTIONS (6)
  - Diarrhoea [None]
  - Gastrointestinal wall thickening [None]
  - Enteritis [None]
  - Enteritis infectious [None]
  - Gastrointestinal inflammation [None]
  - Therapy interrupted [None]

NARRATIVE: CASE EVENT DATE: 20220501
